FAERS Safety Report 14505195 (Version 2)
Quarter: 2018Q2

REPORT INFORMATION
  Report Type: Spontaneous
  Country: US (occurrence: US)
  Receive Date: 20180208
  Receipt Date: 20180521
  Transmission Date: 20180711
  Serious: No
  Sender: FDA-Public Use
  Company Number: US-009507513-1801USA006601

PATIENT
  Age: 29 Year
  Sex: Male

DRUGS (2)
  1. INVANZ [Suspect]
     Active Substance: ERTAPENEM SODIUM
     Indication: OVERDOSE
     Dosage: 1 G, ONCE
     Route: 042
  2. VALPROIC ACID. [Interacting]
     Active Substance: VALPROIC ACID
     Indication: AFFECTIVE DISORDER
     Dosage: UNK

REACTIONS (2)
  - Drug interaction [Unknown]
  - Off label use [Unknown]
